FAERS Safety Report 8371660 (Version 2)
Quarter: 2012Q4

REPORT INFORMATION
  Report Type: Report from Study
  Country: US (occurrence: US)
  Receive Date: 20120129
  Receipt Date: 20121219
  Transmission Date: 20130627
  Serious: Yes (Other)
  Sender: FDA-Public Use
  Company Number: US-ABBOTT-11P-163-0856429-00

PATIENT
  Age: 38 None
  Sex: Female
  Weight: 90.8 kg

DRUGS (3)
  1. HUMIRA 40 MG/0.8 ML PEN [Suspect]
     Indication: PSORIATIC ARTHROPATHY
     Route: 058
     Dates: start: 200509
  2. TRAMADOL [Concomitant]
     Indication: PAIN
  3. SOMA [Concomitant]
     Indication: MUSCLE DISORDER

REACTIONS (10)
  - Urinary incontinence [Recovered/Resolved]
  - Abdominal pain upper [Not Recovered/Not Resolved]
  - Pyrexia [Not Recovered/Not Resolved]
  - Nasopharyngitis [Not Recovered/Not Resolved]
  - Psoriatic arthropathy [Recovered/Resolved]
  - Psoriatic arthropathy [Not Recovered/Not Resolved]
  - Joint lock [Recovering/Resolving]
  - Arthralgia [Not Recovered/Not Resolved]
  - Walking aid user [Not Recovered/Not Resolved]
  - Headache [Not Recovered/Not Resolved]
